FAERS Safety Report 23849667 (Version 2)
Quarter: 2024Q3

REPORT INFORMATION
  Report Type: Report from Study
  Country: US (occurrence: US)
  Receive Date: 20240513
  Receipt Date: 20240814
  Transmission Date: 20241017
  Serious: Yes (Other)
  Sender: MYLAN
  Company Number: US-MYLANLABS-2024M1042566

PATIENT
  Age: 13 Year
  Sex: Male
  Weight: 71.21 kg

DRUGS (4)
  1. CLOZAPINE [Suspect]
     Active Substance: CLOZAPINE
     Indication: Affective disorder
     Dosage: UNK UNK, BID (100 MILLIGRAM 9 AM, 125 MILLIGRAM 9 HS)
     Route: 048
     Dates: start: 202401, end: 20240508
  2. CLOZAPINE [Suspect]
     Active Substance: CLOZAPINE
     Dosage: UNK
     Route: 048
  3. COLACE [Concomitant]
     Active Substance: DOCUSATE SODIUM
     Dosage: 50 MILLIGRAM, BID
     Route: 065
  4. LACTASE [Concomitant]
     Active Substance: LACTASE
     Dosage: UNK, QD (300 UNITS DAILY)
     Route: 065

REACTIONS (2)
  - Neutrophil count decreased [Unknown]
  - Off label use [Unknown]

NARRATIVE: CASE EVENT DATE: 20240508
